FAERS Safety Report 5444077-3 (Version None)
Quarter: 2007Q3

REPORT INFORMATION
  Report Type: 
  Country: None (occurrence: None)
  Receive Date: 20070831
  Receipt Date: 20070820
  Transmission Date: 20080115
  Serious: Yes (Life-Threatening, Hospitalization)
  Sender: FDA-Public Use
  Company Number: US-JNJFOC-20070801537

PATIENT
  Age: 67 Year
  Sex: Female
  Weight: 88.9 kg

DRUGS (1)
  1. DECITABINE (DECITABINE) LYOPHILIZED [Suspect]
     Indication: MYELOFIBROSIS
     Dosage: 264 MG, IN 1 TOTAL, SUBCUTANEOUS
     Route: 058
     Dates: start: 20070709, end: 20070720

REACTIONS (3)
  - ACUTE FEBRILE NEUTROPHILIC DERMATOSIS [None]
  - FEBRILE NEUTROPENIA [None]
  - PANCYTOPENIA [None]
